FAERS Safety Report 4431128-8 (Version None)
Quarter: 2004Q3

REPORT INFORMATION
  Report Type: 
  Country: None (occurrence: None)
  Receive Date: 20040817
  Receipt Date: 20040804
  Transmission Date: 20050211
  Serious: Yes (Other)
  Sender: FDA-Public Use
  Company Number: 2004053704

PATIENT
  Sex: Female
  Weight: 52 kg

DRUGS (4)
  1. ATORVASTATIN (ATORVASTATIN) [Suspect]
     Indication: PERIPHERAL VASCULAR DISORDER
     Dosage: 10 MG (10 MG, 1 IN 1 D)
     Dates: start: 20040430
  2. CODEINE PHOSPHATE AND ACETAMINOPHEN [Concomitant]
  3. BECLOMETHASONE DIPROPIONATE [Concomitant]
  4. SIMVASTATIN [Concomitant]

REACTIONS (3)
  - DEPRESSION SUICIDAL [None]
  - MALAISE [None]
  - PARAESTHESIA [None]
